FAERS Safety Report 7195406-4 (Version None)
Quarter: 2010Q4

REPORT INFORMATION
  Report Type: 
  Country: None (occurrence: None)
  Receive Date: 20101223
  Receipt Date: 20101001
  Transmission Date: 20110411
  Serious: No
  Sender: FDA-Public Use
  Company Number: US-AMGEN-KDL442600

PATIENT

DRUGS (5)
  1. ENBREL [Suspect]
     Indication: PRODUCT USED FOR UNKNOWN INDICATION
     Dosage: 50 MG, QWK
     Route: 058
  2. INDOMETHACIN [Concomitant]
     Dosage: 25 MG, UNK
  3. DOXYCYCLINE [Concomitant]
     Dosage: 200 MG, UNK
  4. SULFASALAZINE [Concomitant]
     Dosage: 500 MG, UNK
  5. VALACYCLOVIR HYDROCHLORIDE [Concomitant]
     Dosage: 1 G, UNK

REACTIONS (1)
  - HERPES ZOSTER [None]
